FAERS Safety Report 25284256 (Version 3)
Quarter: 2025Q2

REPORT INFORMATION
  Report Type: Report from Study
  Country: US (occurrence: US)
  Receive Date: 20250508
  Receipt Date: 20250528
  Transmission Date: 20250717
  Serious: Yes (Other)
  Sender: ABBVIE
  Company Number: US-ABBVIE-6223975

PATIENT
  Age: 32 Year
  Sex: Female
  Weight: 284 kg

DRUGS (16)
  1. QULIPTA [Suspect]
     Active Substance: ATOGEPANT
     Indication: Product used for unknown indication
     Route: 048
  2. PREVACID [Concomitant]
     Active Substance: LANSOPRAZOLE
     Indication: Antacid therapy
  3. LISINOPRIL [Concomitant]
     Active Substance: LISINOPRIL
     Indication: Hypertension
  4. ATORVASTATIN [Concomitant]
     Active Substance: ATORVASTATIN
     Indication: Blood cholesterol
  5. FISH OIL [Concomitant]
     Active Substance: FISH OIL
     Indication: Product used for unknown indication
  6. FIBER THERAPY (CALCIUM POLYCARBOPHIL) [Concomitant]
     Active Substance: CALCIUM POLYCARBOPHIL
     Indication: Product used for unknown indication
  7. VITAMIN D3 [Concomitant]
     Active Substance: CHOLECALCIFEROL
     Indication: Product used for unknown indication
  8. ZYRTEC [Concomitant]
     Active Substance: CETIRIZINE HYDROCHLORIDE
     Indication: Multiple allergies
  9. FLONASE [Concomitant]
     Active Substance: FLUTICASONE PROPIONATE
     Indication: Multiple allergies
  10. MAGNESIUM [Concomitant]
     Active Substance: MAGNESIUM
     Indication: Product used for unknown indication
  11. SUMATRIPTAN [Concomitant]
     Active Substance: SUMATRIPTAN
     Indication: Migraine
  12. AZELASTINE [Concomitant]
     Active Substance: AZELASTINE
     Indication: Multiple allergies
  13. DICLOFENAC [Concomitant]
     Active Substance: DICLOFENAC
     Indication: Product used for unknown indication
  14. GABAPENTIN [Concomitant]
     Active Substance: GABAPENTIN
     Indication: Product used for unknown indication
  15. TIZANIDINE [Concomitant]
     Active Substance: TIZANIDINE
     Indication: Product used for unknown indication
  16. AJOVY [Concomitant]
     Active Substance: FREMANEZUMAB-VFRM
     Indication: Product used for unknown indication

REACTIONS (17)
  - Gallbladder operation [Unknown]
  - Constipation [Unknown]
  - Nausea [Unknown]
  - Vertebroplasty [Unknown]
  - Knee arthroplasty [Unknown]
  - Medical device implantation [Unknown]
  - Hiatus hernia [Unknown]
  - Sleep apnoea syndrome [Unknown]
  - Unevaluable event [Unknown]
  - Hypertension [Unknown]
  - Hepatic steatosis [Unknown]
  - Temporomandibular pain and dysfunction syndrome [Unknown]
  - Hysterectomy [Unknown]
  - Meniscus removal [Unknown]
  - Cubital tunnel syndrome [Unknown]
  - Meniscus removal [Unknown]
  - Meniscus removal [Unknown]

NARRATIVE: CASE EVENT DATE: 19921001
